FAERS Safety Report 6771258-9 (Version None)
Quarter: 2010Q2

REPORT INFORMATION
  Report Type: 
  Country: None (occurrence: None)
  Receive Date: 20100616
  Receipt Date: 20100607
  Transmission Date: 20101027
  Serious: Yes (Hospitalization)
  Sender: FDA-Public Use
  Company Number: IT-MILLENNIUM PHARMACEUTICALS, INC.-2010-02302

PATIENT

DRUGS (1)
  1. VELCADE [Suspect]
     Indication: MULTIPLE MYELOMA
     Dosage: 2.5 MG, UNK
     Route: 065
     Dates: start: 20091113, end: 20091117

REACTIONS (3)
  - PERITONITIS BACTERIAL [None]
  - RENAL CYST INFECTION [None]
  - STAPHYLOCOCCAL SEPSIS [None]
